FAERS Safety Report 8072309-4 (Version None)
Quarter: 2012Q1

REPORT INFORMATION
  Report Type: 
  Country: None (occurrence: None)
  Receive Date: 20120126
  Receipt Date: 20120123
  Transmission Date: 20120608
  Serious: No
  Sender: FDA-Public Use
  Company Number: US-TEVA-319171USA

PATIENT
  Sex: Female
  Weight: 59.02 kg

DRUGS (2)
  1. SANCTURA [Concomitant]
     Indication: HYPERTONIC BLADDER
  2. PLAN B ONE-STEP [Suspect]
     Indication: POST COITAL CONTRACEPTION
     Dosage: 1.5 MILLIGRAM;
     Route: 048
     Dates: start: 20120117, end: 20120117

REACTIONS (1)
  - MENSTRUATION IRREGULAR [None]
